FAERS Safety Report 12520748 (Version 1)
Quarter: 2016Q3

REPORT INFORMATION
  Report Type: Spontaneous
  Country: CA (occurrence: CA)
  Receive Date: 20160701
  Receipt Date: 20160701
  Transmission Date: 20161109
  Serious: Yes (Other)
  Sender: FDA-Public Use
  Company Number: CA-SUN PHARMACEUTICAL INDUSTRIES LTD-2016US-119398

PATIENT
  Age: 54 Year
  Sex: Female

DRUGS (1)
  1. NAPROXEN. [Suspect]
     Active Substance: NAPROXEN
     Indication: PRODUCT USED FOR UNKNOWN INDICATION
     Dosage: UNK, SINGLE (ONE DOSE)
     Route: 048

REACTIONS (4)
  - Syncope [Unknown]
  - Melaena [Unknown]
  - Gastrointestinal stromal tumour [Unknown]
  - Orthostatic hypotension [Unknown]
